FAERS Safety Report 7455847-4 (Version None)
Quarter: 2011Q2

REPORT INFORMATION
  Report Type: 
  Country: None (occurrence: None)
  Receive Date: 20110503
  Receipt Date: 20110426
  Transmission Date: 20111010
  Serious: Yes (Death, Hospitalization)
  Sender: FDA-Public Use
  Company Number: A0789075A

PATIENT
  Age: 72 Year
  Sex: Female
  Weight: 105.5 kg

DRUGS (10)
  1. AVANDIA [Suspect]
     Indication: DIABETES MELLITUS
     Dosage: 8MG PER DAY
     Route: 048
     Dates: start: 20030610, end: 20070101
  2. INSULIN [Concomitant]
  3. LISINOPRIL [Concomitant]
  4. RISPERDAL [Concomitant]
  5. METFORMIN HYDROCHLORIDE [Concomitant]
  6. GLIPIZIDE [Concomitant]
  7. ZOCOR [Concomitant]
  8. SEROQUEL [Concomitant]
  9. BENZTROPINE [Concomitant]
  10. DEPAKOTE ER [Concomitant]

REACTIONS (4)
  - ARTERIOSCLEROSIS CORONARY ARTERY [None]
  - CARDIAC FAILURE CONGESTIVE [None]
  - DEATH [None]
  - MYOCARDIAL ISCHAEMIA [None]
